FAERS Safety Report 13952552 (Version 1)
Quarter: 2017Q3

REPORT INFORMATION
  Report Type: Spontaneous
  Country: US (occurrence: US)
  Receive Date: 20170911
  Receipt Date: 20170911
  Transmission Date: 20171128
  Serious: No
  Sender: FDA-Public Use
  Company Number: US-TEVA-740969USA

PATIENT

DRUGS (1)
  1. FENTANYL TRANSDERMAL SYSTEM [Suspect]
     Active Substance: FENTANYL
     Indication: PRODUCT USED FOR UNKNOWN INDICATION
     Dosage: STRENGTH OF PRODUCT: 25MCG/H
     Route: 065

REACTIONS (6)
  - Incorrect dose administered by device [None]
  - Adverse event [Unknown]
  - Product quality issue [Unknown]
  - Inappropriate schedule of drug administration [None]
  - Drug ineffective [Unknown]
  - Product adhesion issue [Unknown]
